FAERS Safety Report 17666154 (Version 2)
Quarter: 2020Q2

REPORT INFORMATION
  Report Type: Spontaneous
  Country: US (occurrence: US)
  Receive Date: 20200414
  Receipt Date: 20200515
  Transmission Date: 20200713
  Serious: No
  Sender: FDA-Public Use
  Company Number: US-PFIZER INC-2020154137

PATIENT
  Age: 66 Year
  Sex: Female

DRUGS (1)
  1. IBRANCE [Suspect]
     Active Substance: PALBOCICLIB
     Indication: BREAST CANCER METASTATIC
     Dosage: 100 MG, CYCLIC(21DAYS ON/7 DAYS OFF)
     Route: 048
     Dates: start: 20200402

REACTIONS (3)
  - Malaise [Unknown]
  - Nausea [Unknown]
  - Hot flush [Unknown]
